FAERS Safety Report 9236569 (Version 5)
Quarter: 2014Q1

REPORT INFORMATION
  Report Type: Spontaneous
  Country: FR (occurrence: FR)
  Receive Date: 20130417
  Receipt Date: 20140312
  Transmission Date: 20141002
  Serious: Yes (Hospitalization)
  Sender: FDA-Public Use
  Company Number: FR-ROCHE-1213215

PATIENT
  Age: 54 Year
  Sex: Male

DRUGS (6)
  1. ROACTEMRA [Suspect]
     Indication: RHEUMATOID ARTHRITIS
     Route: 065
     Dates: start: 20100621, end: 20120430
  2. ROACTEMRA [Suspect]
     Route: 042
     Dates: start: 201006, end: 201204
  3. SALAZOPYRINE [Suspect]
     Indication: RHEUMATOID ARTHRITIS
     Route: 048
     Dates: start: 200903, end: 201205
  4. SALAZOPYRINE [Suspect]
     Route: 048
     Dates: start: 2007, end: 201204
  5. PREDNISONE [Concomitant]
     Indication: RHEUMATOID ARTHRITIS
     Route: 048
     Dates: start: 2004
  6. PREDNISONE [Concomitant]
     Route: 048
     Dates: start: 2002

REACTIONS (4)
  - Pulmonary fibrosis [Recovering/Resolving]
  - Rheumatoid lung [Recovered/Resolved with Sequelae]
  - Emphysema [Recovered/Resolved with Sequelae]
  - Pulmonary fibrosis [Recovered/Resolved with Sequelae]
